FAERS Safety Report 18878898 (Version 1)
Quarter: 2021Q1

REPORT INFORMATION
  Report Type: Spontaneous
  Country: US (occurrence: US)
  Receive Date: 20210211
  Receipt Date: 20210211
  Transmission Date: 20210420
  Serious: No
  Sender: FDA-Public Use
  Company Number: US-LUPIN PHARMACEUTICALS INC.-2021-01482

PATIENT
  Age: 40 Year
  Sex: Female
  Weight: 49.89 kg

DRUGS (1)
  1. SOLOSEC [Suspect]
     Active Substance: SECNIDAZOLE
     Indication: BACTERIAL VAGINOSIS
     Dosage: UNK (MIXED IT WITH APPLE SAUCE AND CONSUMED WITHIN 5 MINUTES)
     Route: 048
     Dates: start: 20201218, end: 20201218

REACTIONS (1)
  - Folliculitis [Recovering/Resolving]

NARRATIVE: CASE EVENT DATE: 202012
